FAERS Safety Report 18255216 (Version 2)
Quarter: 2020Q3

REPORT INFORMATION
  Report Type: Spontaneous
  Country: FR (occurrence: FR)
  Receive Date: 20200910
  Receipt Date: 20200916
  Transmission Date: 20201103
  Serious: Yes (Hospitalization)
  Sender: FDA-Public Use
  Company Number: FR-009507513-2009FRA002042

PATIENT
  Age: 76 Year
  Sex: Male
  Weight: 80.9 kg

DRUGS (7)
  1. DESLORATADINE. [Suspect]
     Active Substance: DESLORATADINE
     Indication: ARTHROPOD STING
     Dosage: 5 MILLIGRAM, QD
     Route: 048
  2. SOLU?MEDROL [Suspect]
     Active Substance: METHYLPREDNISOLONE SODIUM SUCCINATE
     Indication: ARTHROPOD STING
     Dosage: BOLUS
     Route: 042
     Dates: start: 20200811, end: 20200811
  3. ACETAMINOPHEN. [Concomitant]
     Active Substance: ACETAMINOPHEN
     Route: 048
  4. POLARAMINE (DEXCHLORPHENIRAMINE MALEATE (+) GUAIFENESIN (+) PSEUDOEPHE [Concomitant]
     Indication: ARTHROPOD STING
     Route: 048
  5. BACTRIM [Suspect]
     Active Substance: SULFAMETHOXAZOLE\TRIMETHOPRIM
     Indication: OPPORTUNISTIC INFECTION PROPHYLAXIS
     Dosage: NOT DOCUMENTED
     Route: 048
     Dates: start: 20200801, end: 20200815
  6. AERIUS (DESLORATADINE) [Suspect]
     Active Substance: DESLORATADINE
     Indication: ARTHROPOD STING
     Dosage: 1 DOSAGE FORM, QD
     Route: 048
     Dates: start: 20200811, end: 20200815
  7. SOLUPRED (PREDNISOLONE METASULFOBENZOATE SODIUM) [Suspect]
     Active Substance: PREDNISOLONE SODIUM METAZOATE
     Indication: ARTHROPOD STING
     Dosage: 80 MILLIGRAM, QD
     Route: 048
     Dates: start: 20200811, end: 20200815

REACTIONS (1)
  - Pancreatitis acute [Recovered/Resolved]

NARRATIVE: CASE EVENT DATE: 20200814
